FAERS Safety Report 4678516-2 (Version None)
Quarter: 2005Q2

REPORT INFORMATION
  Report Type: 
  Country: None (occurrence: None)
  Receive Date: 20050601
  Receipt Date: 20050214
  Transmission Date: 20051028
  Serious: Yes (Hospitalization, Other)
  Sender: FDA-Public Use
  Company Number: US-MERCK-0502USA02039

PATIENT
  Age: 19 Year
  Sex: Female
  Weight: 80 kg

DRUGS (3)
  1. VIOXX [Suspect]
     Indication: ARTHRALGIA
     Route: 048
     Dates: start: 20000101, end: 20020301
  2. VIOXX [Suspect]
     Indication: MYALGIA
     Route: 048
     Dates: start: 20000101, end: 20020301
  3. LASIX [Concomitant]
     Indication: FLUID RETENTION
     Route: 065
     Dates: start: 20000101, end: 20010101

REACTIONS (12)
  - AMNESIA [None]
  - CARDIAC FAILURE CONGESTIVE [None]
  - CEREBROVASCULAR ACCIDENT [None]
  - CHEST PAIN [None]
  - EMOTIONAL DISTRESS [None]
  - FLUID RETENTION [None]
  - GALLBLADDER DISORDER [None]
  - MALAISE [None]
  - MITRAL VALVE PROLAPSE [None]
  - NASOPHARYNGITIS [None]
  - PNEUMONIA [None]
  - SYSTEMIC LUPUS ERYTHEMATOSUS [None]
